FAERS Safety Report 4826737-8 (Version None)
Quarter: 2005Q4

REPORT INFORMATION
  Report Type: 
  Country: None (occurrence: None)
  Receive Date: 20051111
  Receipt Date: 20051111
  Transmission Date: 20060501
  Serious: Yes (Life-Threatening, Hospitalization)
  Sender: FDA-Public Use
  Company Number: None

PATIENT
  Age: 54 Year
  Sex: Male
  Weight: 79.8331 kg

DRUGS (1)
  1. WARFARIN    2MG [Suspect]
     Indication: ATRIAL FIBRILLATION
     Dosage: 3MG  DAILY  PO
     Route: 048

REACTIONS (1)
  - EPISTAXIS [None]
